FAERS Safety Report 5341061-5 (Version None)
Quarter: 2007Q2

REPORT INFORMATION
  Report Type: 
  Country: None (occurrence: None)
  Receive Date: 20070405
  Receipt Date: 20070126
  Transmission Date: 20071010
  Serious: No
  Sender: FDA-Public Use
  Company Number: US200701005483

PATIENT
  Age: 47 Year
  Sex: Female

DRUGS (2)
  1. CYMBALTA [Suspect]
     Indication: ANXIETY
     Dosage: 30 MG
     Dates: start: 20070112
  2. LOPRESSOR [Concomitant]

REACTIONS (4)
  - ABDOMINAL DISTENSION [None]
  - DEPRESSED MOOD [None]
  - NAUSEA [None]
  - SLEEP DISORDER [None]
